FAERS Safety Report 5551806-7 (Version None)
Quarter: 2007Q4

REPORT INFORMATION
  Report Type: 
  Country: None (occurrence: None)
  Receive Date: 20071212
  Receipt Date: 20071116
  Transmission Date: 20080405
  Serious: No
  Sender: FDA-Public Use
  Company Number: US-BOEHRINGER INGELHEIM PHARMACEUTICALS, INC.-2007-BP-24797BP

PATIENT
  Sex: Male

DRUGS (2)
  1. FLOMAX [Suspect]
     Indication: URINE FLOW DECREASED
     Route: 048
     Dates: start: 20070101
  2. FINASTERIDE [Concomitant]

REACTIONS (2)
  - DIZZINESS [None]
  - HEART RATE IRREGULAR [None]
